FAERS Safety Report 8580471-X (Version None)
Quarter: 2012Q3

REPORT INFORMATION
  Report Type: 
  Country: None (occurrence: None)
  Receive Date: 20120808
  Receipt Date: 20120807
  Transmission Date: 20120928
  Serious: Yes (Death, Other)
  Sender: FDA-Public Use
  Company Number: JP-BAYER-2012-076297

PATIENT
  Age: 60 Year
  Sex: Male
  Weight: 59.864 kg

DRUGS (10)
  1. ASPIRIN [Suspect]
     Dosage: UNK
     Route: 048
     Dates: start: 20120501
  2. HEPARIN [Concomitant]
     Dosage: UNK
     Route: 041
     Dates: start: 20120301, end: 20120612
  3. ASPIRIN [Suspect]
     Dosage: UNK
     Route: 048
     Dates: start: 20120201, end: 20120307
  4. PLAVIX [Suspect]
     Dosage: UNK
     Route: 048
     Dates: start: 20120201, end: 20120307
  5. PLETAL [Concomitant]
     Dosage: UNK
     Route: 048
     Dates: end: 20120307
  6. ASPIRIN [Suspect]
     Dosage: 100 MG, UNK
     Route: 048
     Dates: start: 20120627, end: 20120701
  7. PLETAL [Concomitant]
     Dosage: DAILY DOSE 200 MG
     Route: 048
     Dates: start: 20120620, end: 20120627
  8. ANPLAG [Concomitant]
     Dosage: DAILY DOSE 300 MG
     Route: 048
     Dates: start: 20120528, end: 20120702
  9. PLAVIX [Suspect]
     Dosage: DAILY DOSE 75 MG
     Route: 048
     Dates: start: 20120612, end: 20120620
  10. HEPARIN [Concomitant]
     Dosage: UNK
     Route: 041
     Dates: start: 20120701

REACTIONS (4)
  - HEPATITIS FULMINANT [None]
  - DRUG-INDUCED LIVER INJURY [None]
  - JAUNDICE [None]
  - ASTHENIA [None]
